FAERS Safety Report 18293299 (Version 1)
Quarter: 2020Q3

REPORT INFORMATION
  Report Type: Spontaneous
  Country: US (occurrence: US)
  Receive Date: 20200921
  Receipt Date: 20200921
  Transmission Date: 20201103
  Serious: Yes (Other)
  Sender: FDA-Public Use
  Company Number: None

PATIENT
  Age: 46 Year
  Sex: Male

DRUGS (1)
  1. LISINOPRIL. [Suspect]
     Active Substance: LISINOPRIL
     Indication: HYPERTENSION
     Route: 048
     Dates: start: 20200819, end: 20200921

REACTIONS (4)
  - Dizziness [None]
  - Headache [None]
  - Hypertension [None]
  - Product substitution issue [None]

NARRATIVE: CASE EVENT DATE: 20200921
